FAERS Safety Report 9727908 (Version 1)
Quarter: 2013Q4

REPORT INFORMATION
  Report Type: Spontaneous
  Country: US (occurrence: US)
  Receive Date: 20131204
  Receipt Date: 20131204
  Transmission Date: 20140711
  Serious: No
  Sender: FDA-Public Use
  Company Number: US-BIOGENIDEC-2013BI112756

PATIENT
  Sex: Male

DRUGS (1)
  1. AVONEX [Suspect]
     Indication: MULTIPLE SCLEROSIS
     Route: 030
     Dates: start: 20090318

REACTIONS (7)
  - Underdose [Unknown]
  - Hearing impaired [Unknown]
  - Visual impairment [Unknown]
  - Drug dose omission [Unknown]
  - Injection site pain [Unknown]
  - Fatigue [Unknown]
  - Multiple sclerosis relapse [Unknown]
